FAERS Safety Report 6025528-2 (Version None)
Quarter: 2008Q4

REPORT INFORMATION
  Report Type: 
  Country: None (occurrence: None)
  Receive Date: 20081231
  Receipt Date: 20081223
  Transmission Date: 20090506
  Serious: Yes (Death, Hospitalization)
  Sender: FDA-Public Use
  Company Number: GR-ABBOTT-08P-066-0448691-00

PATIENT
  Age: 67 Year
  Sex: Female
  Weight: 83.5 kg

DRUGS (13)
  1. HUMIRA [Suspect]
     Indication: RHEUMATOID ARTHRITIS
     Route: 058
     Dates: start: 20070403, end: 20070816
  2. BONIVA [Concomitant]
     Indication: DRUG USE FOR UNKNOWN INDICATION
     Dosage: 150 MG/M
     Route: 048
     Dates: start: 20070424
  3. CALCIORAL [Concomitant]
     Indication: DRUG USE FOR UNKNOWN INDICATION
     Dosage: 500 MG DAILY
     Route: 048
     Dates: start: 20070424
  4. ARAVA [Concomitant]
     Indication: DRUG USE FOR UNKNOWN INDICATION
     Dosage: 20 MG DAILY
     Route: 048
     Dates: start: 20070424
  5. ONE-ALPHA [Concomitant]
     Indication: DRUG USE FOR UNKNOWN INDICATION
     Dosage: 0.25 MG DAILY
     Route: 048
     Dates: start: 20070424
  6. NOOTROP [Concomitant]
     Indication: DEMENTIA
  7. TARONTAL [Concomitant]
     Indication: ENCEPHALOPATHY
     Dates: start: 20050101
  8. SOLIAM [Concomitant]
     Indication: DEPRESSION
     Dates: start: 20060101
  9. PROCEF [Concomitant]
     Indication: URINARY TRACT INFECTION
     Dates: start: 20070905
  10. SPIRIVA [Concomitant]
     Indication: ASTHMA
  11. SYMBICORT [Concomitant]
     Indication: ASTHMA
  12. DRACANIL [Concomitant]
     Indication: ASTHMA
  13. ZESTRIL [Concomitant]
     Indication: HYPERTENSION

REACTIONS (4)
  - HAEMORRHAGIC STROKE [None]
  - LOSS OF CONSCIOUSNESS [None]
  - RESPIRATORY TRACT INFECTION [None]
  - URINARY TRACT INFECTION [None]
